FAERS Safety Report 16546694 (Version 1)
Quarter: 2019Q3

REPORT INFORMATION
  Report Type: Spontaneous
  Country: US (occurrence: US)
  Receive Date: 20190709
  Receipt Date: 20190709
  Transmission Date: 20191004
  Serious: No
  Sender: FDA-Public Use
  Company Number: US-ASTELLAS-2018US051959

PATIENT
  Age: 78 Year
  Sex: Female

DRUGS (1)
  1. MYRBETRIQ [Suspect]
     Active Substance: MIRABEGRON
     Indication: PRODUCT USED FOR UNKNOWN INDICATION
     Route: 065
     Dates: end: 20181130

REACTIONS (6)
  - Feeling abnormal [Unknown]
  - Blood pressure increased [Recovering/Resolving]
  - Dizziness [Unknown]
  - Headache [Unknown]
  - Decreased appetite [Unknown]
  - Alopecia [Unknown]
